FAERS Safety Report 9342283 (Version 3)
Quarter: 2013Q3

REPORT INFORMATION
  Report Type: Spontaneous
  Country: GB (occurrence: None)
  Receive Date: 20130607
  Receipt Date: 20130918
  Transmission Date: 20140515
  Serious: Yes (Other)
  Sender: FDA-Public Use
  Company Number: AUR-APL-2013-04596

PATIENT
  Age: 74 Year
  Sex: Male

DRUGS (2)
  1. BISOPROLOL [Suspect]
     Indication: CARDIAC DISORDER
     Dates: start: 20130214, end: 201303
  2. DILTIAZEM [Suspect]
     Indication: CARDIAC DISORDER
     Dosage: 60 MG, 1 IN 1 D
     Dates: start: 201304, end: 201305

REACTIONS (4)
  - Cutaneous lupus erythematosus [None]
  - Somnolence [None]
  - Photosensitivity reaction [None]
  - Rash [None]
